FAERS Safety Report 10208910 (Version 3)
Quarter: 2014Q2

REPORT INFORMATION
  Report Type: Spontaneous
  Country: US (occurrence: US)
  Receive Date: 20140530
  Receipt Date: 20140620
  Transmission Date: 20141212
  Serious: No
  Sender: FDA-Public Use
  Company Number: US-GILEAD-2014-0103830

PATIENT
  Age: 71 Year
  Sex: Female

DRUGS (4)
  1. LETAIRIS [Suspect]
     Indication: PRODUCT USED FOR UNKNOWN INDICATION
     Route: 065
     Dates: start: 20140213
  2. TYVASO [Suspect]
     Indication: PRODUCT USED FOR UNKNOWN INDICATION
     Route: 065
  3. REVATIO [Concomitant]
     Route: 065
  4. COUMADIN                           /00014802/ [Concomitant]
     Route: 065

REACTIONS (13)
  - Pain in jaw [Recovering/Resolving]
  - Decreased appetite [Unknown]
  - Blister [Recovering/Resolving]
  - Cough [Unknown]
  - Drug hypersensitivity [Unknown]
  - Tonsillar hypertrophy [Recovering/Resolving]
  - Oral mucosal blistering [Recovering/Resolving]
  - Lip swelling [Recovering/Resolving]
  - Swelling face [Recovering/Resolving]
  - Dyspnoea [Unknown]
  - Dizziness [Unknown]
  - Oedema [Unknown]
  - Fatigue [Unknown]
